FAERS Safety Report 11054782 (Version 2)
Quarter: 2015Q4

REPORT INFORMATION
  Report Type: Spontaneous
  Country: GR (occurrence: GR)
  Receive Date: 20150422
  Receipt Date: 20151130
  Transmission Date: 20160304
  Serious: Yes (Death, Hospitalization, Other)
  Sender: FDA-Public Use
  Company Number: GR-009507513-1503GRC001056

PATIENT
  Age: 58 Year
  Sex: Male

DRUGS (1)
  1. INEGY [Suspect]
     Active Substance: EZETIMIBE\SIMVASTATIN
     Indication: DYSLIPIDAEMIA
     Dosage: 1 TABLET EVERY DAY
     Route: 048
     Dates: start: 2012

REACTIONS (2)
  - Lung neoplasm malignant [Fatal]
  - Lung operation [Unknown]

NARRATIVE: CASE EVENT DATE: 20150326
